FAERS Safety Report 9927859 (Version 1)
Quarter: 2014Q1

REPORT INFORMATION
  Report Type: Spontaneous
  Country: FR (occurrence: None)
  Receive Date: 20140221
  Receipt Date: 20140221
  Transmission Date: 20141002
  Serious: Yes (Hospitalization)
  Sender: FDA-Public Use
  Company Number: B0871068A

PATIENT
  Age: 49 Year
  Sex: Male

DRUGS (8)
  1. PAROXETINE HYDROCHLORIDE [Suspect]
     Indication: PRODUCT USED FOR UNKNOWN INDICATION
     Route: 048
     Dates: start: 201208, end: 20130118
  2. CARBAMAZEPINE [Suspect]
     Indication: PRODUCT USED FOR UNKNOWN INDICATION
     Route: 048
  3. CELIPROLOL HYDROCHLORIDE [Concomitant]
  4. BROMAZEPAM [Concomitant]
  5. ZOLPIDEM [Concomitant]
  6. INDAPAMIDE [Concomitant]
  7. LYSINE ASPIRIN [Concomitant]
  8. ATORVASTATIN CALCIUM [Concomitant]

REACTIONS (4)
  - Myoclonus [None]
  - Pain [None]
  - Gait disturbance [None]
  - Dyskinesia [None]
